FAERS Safety Report 5955689-2 (Version None)
Quarter: 2008Q4

REPORT INFORMATION
  Report Type: 
  Country: None (occurrence: None)
  Receive Date: 20081117
  Receipt Date: 20081106
  Transmission Date: 20090506
  Serious: Yes (Other)
  Sender: FDA-Public Use
  Company Number: US-PFIZER INC-2008096095

PATIENT
  Age: 25 Year
  Sex: Male

DRUGS (7)
  1. VARENICLINE TABLETS [Suspect]
     Indication: EX-TOBACCO USER
  2. ZIPRASIDONE HCL [Concomitant]
     Indication: PARANOIA
  3. ZIPRASIDONE HCL [Concomitant]
     Indication: PSYCHOTIC DISORDER
  4. HALOPERIDOL [Concomitant]
     Indication: PARANOIA
  5. HALOPERIDOL [Concomitant]
     Indication: PSYCHOTIC DISORDER
  6. ESCITALOPRAM [Concomitant]
     Indication: OBSESSIVE-COMPULSIVE DISORDER
  7. CARBAMAZEPINE [Concomitant]
     Indication: CONVULSION

REACTIONS (1)
  - PARANOIA [None]
